FAERS Safety Report 15692354 (Version 2)
Quarter: 2018Q4

REPORT INFORMATION
  Report Type: Spontaneous
  Country: FR (occurrence: FR)
  Receive Date: 20181205
  Receipt Date: 20181221
  Transmission Date: 20190205
  Serious: Yes (Other)
  Sender: FDA-Public Use
  Company Number: FR-BEH-2018097225

PATIENT
  Age: 58 Year
  Sex: Female

DRUGS (2)
  1. BASAL-H-INSULIN [Concomitant]
  2. PRIVIGEN [Suspect]
     Active Substance: HUMAN IMMUNOGLOBULIN G
     Indication: IMMUNOSUPPRESSANT DRUG THERAPY
     Route: 065

REACTIONS (1)
  - Anti-GAD antibody positive [Unknown]

NARRATIVE: CASE EVENT DATE: 20181103
